FAERS Safety Report 8579178-4 (Version None)
Quarter: 2012Q3

REPORT INFORMATION
  Report Type: 
  Country: None (occurrence: None)
  Receive Date: 20120808
  Receipt Date: 20120806
  Transmission Date: 20120928
  Serious: No
  Sender: FDA-Public Use
  Company Number: US-PFIZER INC-2012191905

PATIENT
  Age: 64 Year
  Sex: Female

DRUGS (1)
  1. LEVOXYL [Suspect]
     Dosage: UNK
     Dates: end: 20120101

REACTIONS (1)
  - ABDOMINAL DISCOMFORT [None]
